FAERS Safety Report 13931049 (Version 1)
Quarter: 2017Q3

REPORT INFORMATION
  Report Type: Other
  Country: DE (occurrence: DE)
  Receive Date: 20170902
  Receipt Date: 20170902
  Transmission Date: 20171127
  Serious: Yes (Congenital Anomaly, Other)
  Sender: FDA-Public Use
  Company Number: DE-MACLEODS PHARMACEUTICALS US LTD-MAC2017005797

PATIENT

DRUGS (4)
  1. ESCITALOPRAM [Suspect]
     Active Substance: ESCITALOPRAM OXALATE
     Indication: DEPRESSION
     Dosage: 20 MG, QD, (0.-11. GESTATIONAL WEEK)
     Route: 064
     Dates: start: 20161219, end: 20170306
  2. LORATADIN [Concomitant]
     Active Substance: LORATADINE
     Indication: HYPERSENSITIVITY
     Dosage: 10 MG, QD (0.-4.4 GESTATIONAL WEEK)
     Route: 064
     Dates: start: 20161219, end: 20170120
  3. SAISONALE [Concomitant]
     Indication: IMMUNISATION
     Dosage: UNK, (IT WAS APPROXIMATE GESTATIONAL WEEK 5 1/7, 5.1. - 5.1. GESTATIONAL WEEK)
     Route: 064
  4. FOLIO FORTE [Concomitant]
     Active Substance: FOLIC ACID\VITAMINS
     Indication: PROPHYLAXIS OF NEURAL TUBE DEFECT
     Dosage: 0.8 MG, QD (SINCE OCTOBER 2016, (0. - 22.2. GESTATIONAL WEEK))
     Route: 064
     Dates: start: 20161219, end: 20170524

REACTIONS (6)
  - Small for dates baby [Not Recovered/Not Resolved]
  - Foetal exposure during pregnancy [Not Recovered/Not Resolved]
  - Sinus tachycardia [Not Recovered/Not Resolved]
  - Encephalocele [Not Recovered/Not Resolved]
  - Cardiomegaly [Not Recovered/Not Resolved]
  - Dextrocardia [Not Recovered/Not Resolved]
